FAERS Safety Report 7552519-2 (Version None)
Quarter: 2011Q2

REPORT INFORMATION
  Report Type: 
  Country: None (occurrence: None)
  Receive Date: 20110616
  Receipt Date: 20110603
  Transmission Date: 20111010
  Serious: Yes (Hospitalization, Other)
  Sender: FDA-Public Use
  Company Number: US-ELI_LILLY_AND_COMPANY-US201101005356

PATIENT
  Sex: Female

DRUGS (9)
  1. ANALGESICS [Concomitant]
  2. MAGNESIUM [Concomitant]
  3. VITAMIN D [Concomitant]
  4. CALCIUM CARBONATE [Concomitant]
  5. FORTEO [Suspect]
     Dosage: 20 UG, QD
  6. DIOVAN [Concomitant]
     Indication: BLOOD PRESSURE
     Dosage: UNK, UNKNOWN
     Route: 065
  7. FORTEO [Suspect]
     Indication: OSTEOPOROSIS
     Dosage: 20 UG, QD
     Dates: start: 20100901
  8. LOVAZA [Concomitant]
  9. FORTEO [Suspect]
     Dosage: 20 UG, QD

REACTIONS (10)
  - BACK PAIN [None]
  - HIP FRACTURE [None]
  - ANKLE FRACTURE [None]
  - CHEST PAIN [None]
  - HEART RATE INCREASED [None]
  - HOSPITALISATION [None]
  - PAIN [None]
  - FALL [None]
  - ARTHRALGIA [None]
  - HAIR GROWTH ABNORMAL [None]
